FAERS Safety Report 8928606 (Version 5)
Quarter: 2013Q1

REPORT INFORMATION
  Report Type: Report from Study
  Country: CA (occurrence: CA)
  Receive Date: 20121127
  Receipt Date: 20130122
  Transmission Date: 20140127
  Serious: Yes (Hospitalization, Other)
  Sender: FDA-Public Use
  Company Number: CA-ROCHE-1157402

PATIENT
  Sex: Female

DRUGS (3)
  1. VEMURAFENIB [Suspect]
     Indication: METASTATIC MALIGNANT MELANOMA
     Route: 048
     Dates: start: 201210, end: 20121218
  2. VEMURAFENIB [Suspect]
     Route: 048
     Dates: start: 2012
  3. KEPPRA [Concomitant]
     Route: 065

REACTIONS (9)
  - Meningitis [Unknown]
  - Neoplasm skin [Unknown]
  - Swelling [Unknown]
  - Dry skin [Unknown]
  - Skin warm [Unknown]
  - Dysstasia [Not Recovered/Not Resolved]
  - Motor dysfunction [Not Recovered/Not Resolved]
  - Asthenia [Not Recovered/Not Resolved]
  - General physical health deterioration [Not Recovered/Not Resolved]
